FAERS Safety Report 4657767-7 (Version None)
Quarter: 2005Q2

REPORT INFORMATION
  Report Type: 
  Country: None (occurrence: None)
  Receive Date: 20050510
  Receipt Date: 20050428
  Transmission Date: 20051028
  Serious: Yes (Hospitalization)
  Sender: FDA-Public Use
  Company Number: US-GLAXOSMITHKLINE-A0556177A

PATIENT
  Age: 50 Year
  Sex: Male
  Weight: 104 kg

DRUGS (9)
  1. TUMS [Suspect]
     Indication: GASTROOESOPHAGEAL REFLUX DISEASE
     Route: 048
     Dates: start: 19400101
  2. CIMETIDINE [Concomitant]
  3. COLCHICINE [Concomitant]
  4. TRIAZOLAM [Concomitant]
  5. ACETAMINOPHEN W/ CODEINE [Concomitant]
  6. SUPPOSITORY [Concomitant]
  7. VICODIN [Concomitant]
  8. PREDNISONE [Concomitant]
  9. ANTACID TAB [Concomitant]
     Route: 048

REACTIONS (9)
  - ARTERIAL DISORDER [None]
  - ARTERIAL OCCLUSIVE DISEASE [None]
  - BLOOD CHOLESTEROL INCREASED [None]
  - CARDIOVASCULAR DISORDER [None]
  - DIABETES MELLITUS [None]
  - HYPERTENSION [None]
  - MYOCARDIAL INFARCTION [None]
  - NEUROPATHY PERIPHERAL [None]
  - VASCULAR CALCIFICATION [None]
